FAERS Safety Report 15079515 (Version 1)
Quarter: 2018Q2

REPORT INFORMATION
  Report Type: Report from Study
  Country: US (occurrence: US)
  Receive Date: 20180627
  Receipt Date: 20180627
  Transmission Date: 20180711
  Serious: No
  Sender: FDA-Public Use
  Company Number: US-AMGEN-USASL2017021943

PATIENT
  Age: 81 Year
  Sex: Female

DRUGS (5)
  1. FOSAMAX [Concomitant]
     Active Substance: ALENDRONATE SODIUM
  2. ALENDRONATE [Concomitant]
     Active Substance: ALENDRONATE SODIUM
  3. BONIVA [Concomitant]
     Active Substance: IBANDRONATE SODIUM
  4. ACTONEL [Concomitant]
     Active Substance: RISEDRONATE SODIUM
  5. PROLIA [Suspect]
     Active Substance: DENOSUMAB
     Indication: OSTEOPOROSIS
     Dosage: 60 MG, Q6MO
     Route: 058

REACTIONS (1)
  - Off label use [Unknown]
